FAERS Safety Report 5991843-1 (Version None)
Quarter: 2008Q4

REPORT INFORMATION
  Report Type: 
  Country: None (occurrence: None)
  Receive Date: 20081211
  Receipt Date: 20081203
  Transmission Date: 20090506
  Serious: Yes (Hospitalization)
  Sender: FDA-Public Use
  Company Number: US-B.I. PHARMACEUTICALS,INC./RIDGEFIELD-2008-BP-18020BP

PATIENT
  Age: 62 Year
  Sex: Male

DRUGS (2)
  1. MIRAPEX [Suspect]
     Indication: RESTLESS LEGS SYNDROME
     Dosage: .25MG
     Route: 048
     Dates: start: 20081022, end: 20081029
  2. FELODIPINE [Concomitant]

REACTIONS (7)
  - ABNORMAL BEHAVIOUR [None]
  - AMNESIA [None]
  - EMOTIONAL DISORDER [None]
  - HYPERSENSITIVITY [None]
  - MOOD ALTERED [None]
  - THINKING ABNORMAL [None]
  - VISUAL IMPAIRMENT [None]
